FAERS Safety Report 10897281 (Version 7)
Quarter: 2019Q3

REPORT INFORMATION
  Report Type: Spontaneous
  Country: US (occurrence: US)
  Receive Date: 20150309
  Receipt Date: 20190805
  Transmission Date: 20191004
  Serious: Yes (Hospitalization)
  Sender: FDA-Public Use
  Company Number: US-PFIZER INC-2015078242

PATIENT
  Age: 63 Year
  Sex: Female
  Weight: 67 kg

DRUGS (13)
  1. ESTRADIOL. [Concomitant]
     Active Substance: ESTRADIOL
     Dosage: 0.5 MG, (THREE TIMES A WEEK)
     Dates: start: 201401
  2. HYDROCODONE BITARTRATE AND ACETAMINOPHEN [Concomitant]
     Active Substance: ACETAMINOPHEN\HYDROCODONE BITARTRATE
     Indication: PAIN
     Dosage: UNK, (5-325 3X/DAY OR AS NEEDED)
  3. LYRICA [Suspect]
     Active Substance: PREGABALIN
     Indication: BACK PAIN
     Dosage: UNK, 2X/DAY [TAKE 1-2 CAPSULE (150-300 MG TOTAL); MAX 3 CAPS/DAY]
     Route: 048
     Dates: start: 20190208
  4. LOVASTATIN. [Concomitant]
     Active Substance: LOVASTATIN
     Indication: BLOOD CHOLESTEROL INCREASED
     Dosage: 40 MG, 1X/DAY, (AT NIGHT)
     Dates: start: 2007
  5. LISINOPRIL. [Concomitant]
     Active Substance: LISINOPRIL
     Indication: HYPERTENSION
     Dosage: 5 MG, 1X/DAY
     Dates: start: 2009
  6. LYRICA [Suspect]
     Active Substance: PREGABALIN
     Indication: FIBROMYALGIA
     Dosage: 150 MG, 3X/DAY
     Dates: start: 2009
  7. LYRICA [Suspect]
     Active Substance: PREGABALIN
     Indication: INTERVERTEBRAL DISC DEGENERATION
     Dosage: UNK, 2X/DAY [1-2 CAPSULES (150-300 MG TOTAL)]
     Route: 048
  8. OMEPRAZOLE. [Concomitant]
     Active Substance: OMEPRAZOLE
     Dosage: 20 MG, 2X/DAY
     Dates: start: 2009
  9. LORAZEPAM. [Concomitant]
     Active Substance: LORAZEPAM
     Indication: INSOMNIA
     Dosage: 0.5 MG, AS NEEDED
  10. NORETHINDRONE ACETATE. [Concomitant]
     Active Substance: NORETHINDRONE ACETATE
     Dosage: 5 MG, 3XWEEK
  11. LYRICA [Suspect]
     Active Substance: PREGABALIN
     Indication: DIFFUSE IDIOPATHIC SKELETAL HYPEROSTOSIS
     Dosage: 450 MG, DAILY (MAX 3 CAPS/DAY)
     Route: 048
  12. WELLBUTRIN SR [Concomitant]
     Active Substance: BUPROPION HYDROCHLORIDE
     Indication: DEPRESSION
     Dosage: 200 MG, 2X/DAY
  13. LYRICA [Suspect]
     Active Substance: PREGABALIN
     Indication: NECK PAIN
     Dosage: UNK, 2X/DAY [1-2 CAPSULES (150-300 MG TOTAL); MAX 3 CAPS/DAY]
     Route: 048
     Dates: start: 20190124

REACTIONS (8)
  - Arthritis [Not Recovered/Not Resolved]
  - Joint injury [Recovering/Resolving]
  - Memory impairment [Recovering/Resolving]
  - Fall [Recovered/Resolved]
  - Bursitis [Recovered/Resolved]
  - Exostosis [Unknown]
  - Ligament sprain [Recovered/Resolved]
  - Irritability [Unknown]
